FAERS Safety Report 4732750-1 (Version None)
Quarter: 2005Q3

REPORT INFORMATION
  Report Type: 
  Country: None (occurrence: None)
  Receive Date: 20050803
  Receipt Date: 20050801
  Transmission Date: 20060218
  Serious: Yes (Other)
  Sender: FDA-Public Use
  Company Number: US-GLAXOSMITHKLINE-A0568447A

PATIENT
  Age: 17 Year
  Sex: Male

DRUGS (4)
  1. LAMICTAL [Suspect]
     Indication: BIPOLAR DISORDER
     Route: 048
     Dates: start: 20040601
  2. GEODON [Concomitant]
  3. SEROQUEL [Concomitant]
  4. ZYPREXA [Concomitant]

REACTIONS (2)
  - HYPOMANIA [None]
  - SKIN ODOUR ABNORMAL [None]
